FAERS Safety Report 5145766-0 (Version None)
Quarter: 2006Q4

REPORT INFORMATION
  Report Type: 
  Country: None (occurrence: None)
  Receive Date: 20061102
  Receipt Date: 20061022
  Transmission Date: 20070319
  Serious: Yes (Other)
  Sender: FDA-Public Use
  Company Number: 2006129689

PATIENT
  Age: 77 Year
  Sex: Male

DRUGS (4)
  1. CELEBREX [Suspect]
     Indication: RHEUMATOID ARTHRITIS
     Dosage: 200 MG (200 MG, AS NECESSARY), ORAL
     Route: 048
     Dates: start: 19980101
  2. LISINOPRIL [Concomitant]
  3. ALLOPURINOL [Concomitant]
  4. ASPIRIN [Concomitant]

REACTIONS (2)
  - TRANSURETHRAL PROSTATECTOMY [None]
  - URINARY RETENTION [None]
